FAERS Safety Report 24447991 (Version 1)
Quarter: 2024Q4

REPORT INFORMATION
  Report Type: Report from Study
  Country: US (occurrence: US)
  Receive Date: 20241016
  Receipt Date: 20241016
  Transmission Date: 20250114
  Serious: Yes (Other)
  Sender: BOEHRINGER INGELHEIM
  Company Number: US-BoehringerIngelheim-2024-BI-056288

PATIENT
  Age: 36 Year
  Sex: Female

DRUGS (1)
  1. SPEVIGO [Suspect]
     Active Substance: SPESOLIMAB-SBZO
     Indication: Product used for unknown indication
     Dosage: NEEDLE THAT IS SELF-INJECTED AT HOME (SPESOLIMAB-SBZO)
     Route: 042
     Dates: start: 2022

REACTIONS (1)
  - Generalised pustular psoriasis [Unknown]

NARRATIVE: CASE EVENT DATE: 20230101
